FAERS Safety Report 9596996 (Version 2)
Quarter: 2013Q4

REPORT INFORMATION
  Report Type: Report from Study
  Country: CA (occurrence: CA)
  Receive Date: 20131004
  Receipt Date: 20131101
  Transmission Date: 20140711
  Serious: Yes (Other)
  Sender: FDA-Public Use
  Company Number: CA-ABBVIE-13P-028-1152120-00

PATIENT
  Age: 50 Year
  Sex: Female

DRUGS (2)
  1. KALETRA [Suspect]
     Indication: BILIARY CIRRHOSIS PRIMARY
     Route: 048
     Dates: start: 20130326
  2. TRUVADA [Concomitant]
     Indication: BILIARY CIRRHOSIS PRIMARY
     Route: 048
     Dates: start: 20130326, end: 20130617

REACTIONS (1)
  - Ascites [Not Recovered/Not Resolved]
